FAERS Safety Report 22017759 (Version 1)
Quarter: 2023Q1

REPORT INFORMATION
  Report Type: Spontaneous
  Country: DE (occurrence: DE)
  Receive Date: 20230221
  Receipt Date: 20230221
  Transmission Date: 20230417
  Serious: Yes (Death)
  Sender: FDA-Public Use
  Company Number: DE-BBM-DE-BBM-202205146

PATIENT
  Sex: Male

DRUGS (1)
  1. PROPOFOL [Suspect]
     Active Substance: PROPOFOL
     Indication: Intentional overdose
     Dosage: LETHAL DOSE: 2-PERCENT
     Route: 065
     Dates: start: 2012

REACTIONS (2)
  - Product use complaint [Fatal]
  - Intentional product misuse [Fatal]
